FAERS Safety Report 16462080 (Version 1)
Quarter: 2019Q2

REPORT INFORMATION
  Report Type: Spontaneous
  Country: EG (occurrence: EG)
  Receive Date: 20190621
  Receipt Date: 20190621
  Transmission Date: 20190711
  Serious: Yes (Hospitalization, Other)
  Sender: FDA-Public Use
  Company Number: EG-HIKMA PHARMACEUTICALS USA INC.-EG-H14001-19-03964

PATIENT
  Age: 26 Year
  Sex: Male
  Weight: 65 kg

DRUGS (4)
  1. ETOPUL [Suspect]
     Active Substance: ETOPOSIDE
     Indication: TESTIS CANCER
     Route: 041
     Dates: start: 20180313
  2. CYTOPLATIN [Suspect]
     Active Substance: CISPLATIN
     Indication: TESTIS CANCER
     Route: 040
     Dates: start: 20180313
  3. BLEOCIP [Suspect]
     Active Substance: BLEOMYCIN SULFATE
     Indication: TESTIS CANCER
     Route: 041
     Dates: start: 20180313
  4. ETOPUL [Suspect]
     Active Substance: ETOPOSIDE
     Route: 041
     Dates: start: 20180313

REACTIONS (6)
  - Productive cough [Unknown]
  - Leukopenia [Unknown]
  - Thrombocytopenia [Unknown]
  - Diarrhoea [Unknown]
  - Pyrexia [Unknown]
  - Gastritis [Unknown]

NARRATIVE: CASE EVENT DATE: 20180313
